FAERS Safety Report 10461175 (Version 1)
Quarter: 2014Q3

REPORT INFORMATION
  Report Type: Report from Study
  Country: BR (occurrence: BR)
  Receive Date: 20140918
  Receipt Date: 20140918
  Transmission Date: 20150326
  Serious: Yes (Hospitalization)
  Sender: FDA-Public Use
  Company Number: BR-BAYER-2014-134775

PATIENT
  Age: 29 Year
  Sex: Female

DRUGS (11)
  1. CIPRO [Suspect]
     Active Substance: CIPROFLOXACIN HYDROCHLORIDE
     Indication: NAUSEA
  2. CIPRO [Suspect]
     Active Substance: CIPROFLOXACIN HYDROCHLORIDE
     Indication: NAUSEA
     Dosage: 1 DF, BID
     Route: 048
     Dates: start: 201407, end: 2014
  3. MANTIDAN [Concomitant]
     Active Substance: AMANTADINE HYDROCHLORIDE
     Indication: FATIGUE
     Dosage: 1 DF, BID
     Route: 048
     Dates: start: 201303
  4. BETAFERON [Suspect]
     Active Substance: INTERFERON BETA-1B
     Indication: SECONDARY PROGRESSIVE MULTIPLE SCLEROSIS
     Dosage: 1 ML, QOD
     Route: 058
     Dates: start: 201303, end: 201408
  5. CIPRO [Suspect]
     Active Substance: CIPROFLOXACIN HYDROCHLORIDE
     Indication: DIARRHOEA
     Dosage: UNK
     Route: 042
     Dates: start: 201407, end: 201407
  6. CIPRO [Suspect]
     Active Substance: CIPROFLOXACIN HYDROCHLORIDE
     Indication: VOMITING
  7. EUTHYROX [Concomitant]
     Active Substance: LEVOTHYROXINE SODIUM
     Indication: HYPOTHYROIDISM
     Dosage: 1 DF, QD
     Route: 048
  8. BELARA [Concomitant]
     Active Substance: CHLORMADINONE ACETATE\ETHINYL ESTRADIOL
     Indication: CONTRACEPTION
     Dosage: 1 DF, QD
     Route: 048
  9. CIPRO [Suspect]
     Active Substance: CIPROFLOXACIN HYDROCHLORIDE
     Indication: DIARRHOEA
  10. CIPRO [Suspect]
     Active Substance: CIPROFLOXACIN HYDROCHLORIDE
     Indication: VOMITING
  11. LYRICA [Concomitant]
     Active Substance: PREGABALIN
     Indication: FATIGUE
     Dosage: 1 DF, QD
     Route: 048
     Dates: start: 2013, end: 201406

REACTIONS (12)
  - Multiple sclerosis relapse [Recovering/Resolving]
  - Aphasia [Recovered/Resolved]
  - Nausea [None]
  - Dizziness [None]
  - Aphagia [Recovered/Resolved]
  - Diarrhoea [None]
  - Multiple sclerosis relapse [Recovered/Resolved]
  - Vomiting [None]
  - Gait disturbance [Recovering/Resolving]
  - Diplopia [Recovered/Resolved]
  - Fatigue [Recovering/Resolving]
  - Abasia [Recovered/Resolved]

NARRATIVE: CASE EVENT DATE: 2014
